FAERS Safety Report 6781765-0 (Version None)
Quarter: 2010Q2

REPORT INFORMATION
  Report Type: 
  Country: None (occurrence: None)
  Receive Date: 20100621
  Receipt Date: 20100616
  Transmission Date: 20101027
  Serious: Yes (Other)
  Sender: FDA-Public Use
  Company Number: IT-BAXTER-2010BH016180

PATIENT
  Age: 69 Year
  Sex: Female

DRUGS (9)
  1. ENDOXAN BAXTER [Suspect]
     Indication: BREAST CANCER
     Route: 042
     Dates: start: 20100315, end: 20100407
  2. TAXOTERE [Suspect]
     Indication: BREAST CANCER
     Route: 042
     Dates: start: 20100315, end: 20100407
  3. DEXAMETHASONE [Suspect]
     Indication: CHEMOTHERAPY
     Route: 042
     Dates: start: 20100315, end: 20100407
  4. DELTACORTENE [Suspect]
     Indication: CHEMOTHERAPY
     Route: 048
     Dates: start: 20100312, end: 20100503
  5. GRANULOKINE [Concomitant]
     Indication: NEUTROPENIA
     Route: 058
     Dates: start: 20100323, end: 20100412
  6. LANOXIN [Concomitant]
     Indication: ATRIAL FIBRILLATION
     Route: 048
     Dates: start: 20100302, end: 20100525
  7. ENOXAPARIN SODIUM [Concomitant]
     Indication: ATRIAL FIBRILLATION
     Route: 058
     Dates: start: 20100302, end: 20100525
  8. CLONIDINE [Concomitant]
     Indication: HYPERTENSION
     Route: 048
     Dates: start: 20100302, end: 20100525
  9. RAMIPRIL [Concomitant]
     Indication: HYPERTENSION
     Route: 048
     Dates: start: 20100302, end: 20100525

REACTIONS (1)
  - HEPATITIS [None]
